FAERS Safety Report 13176784 (Version 2)
Quarter: 2017Q1

REPORT INFORMATION
  Report Type: Report from Study
  Country: FR (occurrence: FR)
  Receive Date: 20170201
  Receipt Date: 20170228
  Transmission Date: 20170428
  Serious: Yes (Hospitalization)
  Sender: FDA-Public Use
  Company Number: FR-BAXALTA-2017BLT000565

PATIENT
  Age: 2 Year
  Sex: Male
  Weight: 12.5 kg

DRUGS (34)
  1. ONCASPAR [Suspect]
     Active Substance: PEGASPARGASE
     Dosage: 662.5 IU
     Route: 042
     Dates: start: 20161202, end: 20161202
  2. METHOTREXATE. [Suspect]
     Active Substance: METHOTREXATE
     Indication: ACUTE LYMPHOCYTIC LEUKAEMIA
     Dosage: 10 MG
     Route: 037
     Dates: start: 20161215, end: 20161215
  3. METHOTREXATE. [Suspect]
     Active Substance: METHOTREXATE
     Dosage: 10 MG
     Route: 037
     Dates: start: 20161121, end: 20161121
  4. CYTARABINE. [Suspect]
     Active Substance: CYTARABINE
     Indication: ACUTE LYMPHOCYTIC LEUKAEMIA
     Dosage: 25 MG
     Route: 037
     Dates: start: 20161215, end: 20161215
  5. PIPERACILLIN SODIUM, TAZOBACTAM SODIUM [Concomitant]
     Active Substance: PIPERACILLIN SODIUM\TAZOBACTAM SODIUM
     Indication: SEPSIS
     Dosage: UNK
     Route: 065
     Dates: start: 20161209
  6. DAUNORUBICIN [Suspect]
     Active Substance: DAUNORUBICIN
     Indication: ACUTE LYMPHOCYTIC LEUKAEMIA
     Dosage: 16.8 MG (30 MG/M2)
     Route: 042
     Dates: start: 20161127, end: 20161222
  7. HYDROCORTISONE. [Suspect]
     Active Substance: HYDROCORTISONE
     Dosage: 12.5 MG
     Route: 037
     Dates: start: 20161207, end: 20161207
  8. LINEZOLID. [Concomitant]
     Active Substance: LINEZOLID
     Indication: PYREXIA
     Dosage: UNK
     Dates: start: 20161224
  9. AMOXICILLIN. [Concomitant]
     Active Substance: AMOXICILLIN
     Indication: PYREXIA
  10. METHOTREXATE. [Suspect]
     Active Substance: METHOTREXATE
     Dosage: 10 MG
     Route: 037
     Dates: start: 20161202, end: 20161202
  11. VANCOMYCIN [Concomitant]
     Active Substance: VANCOMYCIN
     Indication: PYREXIA
     Dosage: UNK
     Dates: end: 20161224
  12. AMOXICILLIN. [Concomitant]
     Active Substance: AMOXICILLIN
     Indication: COUGH
     Dosage: PAST THERAPY
  13. ONCASPAR [Suspect]
     Active Substance: PEGASPARGASE
     Indication: ACUTE LYMPHOCYTIC LEUKAEMIA
     Dosage: 662.5 IU
     Route: 042
     Dates: start: 20161217, end: 20161217
  14. VINCRISTINE [Suspect]
     Active Substance: VINCRISTINE
     Indication: ACUTE LYMPHOCYTIC LEUKAEMIA
     Dosage: 0.84 MG (1.5 MG/M2)
     Route: 042
     Dates: start: 20161127, end: 20161222
  15. CASPOFUNGIN ACETATE. [Concomitant]
     Active Substance: CASPOFUNGIN ACETATE
     Indication: PYREXIA
  16. METHOTREXATE. [Suspect]
     Active Substance: METHOTREXATE
     Dosage: 10 MG
     Route: 037
     Dates: start: 20161207, end: 20161207
  17. CYTARABINE. [Suspect]
     Active Substance: CYTARABINE
     Dosage: 25 MG
     Route: 037
     Dates: start: 20161202, end: 20161202
  18. PREDNISOLONE. [Suspect]
     Active Substance: PREDNISOLONE
     Dosage: 17.1 MG, 2X A DAY
     Route: 048
     Dates: start: 20161121, end: 20161126
  19. HYDROCORTISONE. [Suspect]
     Active Substance: HYDROCORTISONE
     Indication: ACUTE LYMPHOCYTIC LEUKAEMIA
     Dosage: 12.5 MG
     Route: 037
     Dates: start: 20161215, end: 20161215
  20. CLONAZEPAM. [Concomitant]
     Active Substance: CLONAZEPAM
     Indication: FACIAL NEURALGIA
  21. RED BLOOD CELLS, CONCENTRATED [Concomitant]
     Active Substance: HUMAN RED BLOOD CELL
     Indication: PRODUCT USED FOR UNKNOWN INDICATION
     Dosage: 9 TOTAL TRANSFUSIONS
  22. PLATELETS [Concomitant]
     Active Substance: HUMAN PLATELET, ALLOGENIC
     Indication: PRODUCT USED FOR UNKNOWN INDICATION
     Dosage: 16 TOTAL TRANSFUSIONS
  23. PREDNISONE. [Suspect]
     Active Substance: PREDNISONE
     Indication: ACUTE LYMPHOCYTIC LEUKAEMIA
     Dosage: 30 MG (60 MG/M2/DAY), 1X A DAY
     Route: 048
  24. CYTARABINE. [Suspect]
     Active Substance: CYTARABINE
     Dosage: 25 MG
     Route: 037
     Dates: start: 20161127, end: 20161127
  25. PREDNISOLONE. [Suspect]
     Active Substance: PREDNISOLONE
     Indication: ACUTE LYMPHOCYTIC LEUKAEMIA
     Dosage: 16.8 MG (30 MG/M2), 2X A DAY
     Route: 048
     Dates: start: 20161120, end: 20161224
  26. HYDROCORTISONE. [Suspect]
     Active Substance: HYDROCORTISONE
     Dosage: 12.5 MG
     Route: 037
     Dates: start: 20161202, end: 20161202
  27. PIPERACILLIN SODIUM, TAZOBACTAM SODIUM [Concomitant]
     Active Substance: PIPERACILLIN SODIUM\TAZOBACTAM SODIUM
     Indication: FEBRILE BONE MARROW APLASIA
     Dosage: UNK
     Route: 065
     Dates: start: 20161120, end: 20161128
  28. CILASTATIN SODIUM, IMIPENEM [Concomitant]
     Active Substance: CILASTATIN SODIUM\IMIPENEM
     Indication: PYREXIA
  29. CILASTATIN SODIUM, IMIPENEM [Concomitant]
     Active Substance: CILASTATIN SODIUM\IMIPENEM
     Indication: RESPIRATORY FAILURE
     Dosage: 170 MG, 4X A DAY
     Route: 042
  30. METHOTREXATE. [Suspect]
     Active Substance: METHOTREXATE
     Dosage: 10 MG
     Route: 037
     Dates: start: 20161127, end: 20161127
  31. CYTARABINE. [Suspect]
     Active Substance: CYTARABINE
     Dosage: 25 MG
     Route: 037
     Dates: start: 20161207, end: 20161207
  32. HYDROCORTISONE. [Suspect]
     Active Substance: HYDROCORTISONE
     Dosage: 12.5 MG
     Route: 037
     Dates: start: 20161127, end: 20161127
  33. LINEZOLID. [Concomitant]
     Active Substance: LINEZOLID
     Indication: RESPIRATORY FAILURE
  34. OXYGEN. [Concomitant]
     Active Substance: OXYGEN
     Indication: PNEUMONIA
     Dosage: 1 TO 2 LITERS WITH MASK
     Route: 055

REACTIONS (2)
  - Lung abscess [Recovered/Resolved with Sequelae]
  - Pleurisy [Recovered/Resolved with Sequelae]

NARRATIVE: CASE EVENT DATE: 20170109
